FAERS Safety Report 22240582 (Version 1)
Quarter: 2023Q2

REPORT INFORMATION
  Report Type: Spontaneous
  Country: ID (occurrence: ID)
  Receive Date: 20230421
  Receipt Date: 20230421
  Transmission Date: 20230721
  Serious: Yes (Other)
  Sender: FDA-Public Use
  Company Number: ID-NOVAST LABORATORIES INC.-2023NOV000237

PATIENT
  Age: 49 Year
  Sex: Male

DRUGS (2)
  1. OXALIPLATIN [Suspect]
     Active Substance: OXALIPLATIN
     Indication: Colorectal cancer metastatic
     Dosage: 3 TIMES A WEEK FOR 8 CYCLES
     Route: 065
  2. XELODA [Suspect]
     Active Substance: CAPECITABINE
     Indication: Colorectal cancer metastatic
     Dosage: 3 TIMES A WEEK FOR 8 CYCLES
     Route: 065

REACTIONS (1)
  - Acute kidney injury [Unknown]
